FAERS Safety Report 7777034-2 (Version None)
Quarter: 2011Q3

REPORT INFORMATION
  Report Type: 
  Country: None (occurrence: None)
  Receive Date: 20110926
  Receipt Date: 20110926
  Transmission Date: 20111222
  Serious: No
  Sender: FDA-Public Use
  Company Number: None

PATIENT
  Age: 48 Year
  Sex: Female
  Weight: 54.431 kg

DRUGS (1)
  1. CIPROFLOXACIN [Suspect]
     Indication: URINARY TRACT INFECTION
     Dosage: 500MG
     Route: 048
     Dates: start: 20110716, end: 20110720

REACTIONS (5)
  - NEUROPATHY PERIPHERAL [None]
  - TENDONITIS [None]
  - HYPOAESTHESIA [None]
  - ARTHRALGIA [None]
  - PARAESTHESIA [None]
